FAERS Safety Report 6464517-0 (Version None)
Quarter: 2009Q4

REPORT INFORMATION
  Report Type: 
  Country: None (occurrence: None)
  Receive Date: 20091201
  Receipt Date: 20091120
  Transmission Date: 20100525
  Serious: Yes (Other)
  Sender: FDA-Public Use
  Company Number: US-PFIZER INC-2009301589

PATIENT
  Sex: Female
  Weight: 58.05 kg

DRUGS (5)
  1. LIPITOR [Suspect]
     Indication: BLOOD CHOLESTEROL INCREASED
     Dosage: 20 MG, 1X/DAY
     Route: 048
  2. VERAPAMIL HYDROCHLORIDE [Concomitant]
     Dosage: 240 MG, UNK
     Route: 048
  3. LASIX [Concomitant]
     Dosage: UNK
     Route: 048
  4. VITAMIN D [Concomitant]
     Dosage: FREQUENCY: AS NEEDED
     Route: 048
  5. VALSARTAN [Concomitant]
     Dosage: 320 MG, UNK
     Route: 048

REACTIONS (4)
  - INSOMNIA [None]
  - MUSCLE SPASMS [None]
  - PAIN [None]
  - RENAL IMPAIRMENT [None]
